FAERS Safety Report 10783118 (Version 5)
Quarter: 2015Q3

REPORT INFORMATION
  Report Type: Spontaneous
  Country: US (occurrence: US)
  Receive Date: 20150210
  Receipt Date: 20150811
  Transmission Date: 20151125
  Serious: Yes (Hospitalization, Congenital Anomaly, Other)
  Sender: FDA-Public Use
  Company Number: US-APOTEX-2015AP006382

PATIENT
  Age: 0 Day
  Sex: Female
  Weight: 2.7 kg

DRUGS (2)
  1. PAXIL [Suspect]
     Active Substance: PAROXETINE HYDROCHLORIDE
     Indication: DEPRESSION
     Dosage: 20 MG, Q.H.S.
     Route: 064
     Dates: start: 1995, end: 1996
  2. PRENATAL VITAMINS                  /07426201/ [Concomitant]
     Active Substance: ASCORBIC ACID\BIOTIN\MINERALS\NIACIN\RETINOL\TOCOPHEROL\VITAMIN B\VITAMIN D
     Indication: PREGNANCY
     Dosage: UNK
     Route: 064
     Dates: start: 199510, end: 199607

REACTIONS (14)
  - Dyslexia [Unknown]
  - Eczema [Unknown]
  - Disturbance in attention [Unknown]
  - Otitis media [Unknown]
  - Enterocolitis [Unknown]
  - Premature baby [Unknown]
  - Gastroschisis [Unknown]
  - Abdominal wall anomaly [Recovering/Resolving]
  - Foetal exposure during pregnancy [Unknown]
  - Learning disability [Unknown]
  - Gastrooesophageal reflux disease [Unknown]
  - Congenital umbilical hernia [Recovering/Resolving]
  - Early satiety [Unknown]
  - Micturition disorder [Unknown]

NARRATIVE: CASE EVENT DATE: 19960702
